FAERS Safety Report 5514285-1 (Version None)
Quarter: 2007Q4

REPORT INFORMATION
  Report Type: 
  Country: None (occurrence: None)
  Receive Date: 20071113
  Receipt Date: 20071106
  Transmission Date: 20080405
  Serious: Yes (Life-Threatening, Hospitalization)
  Sender: FDA-Public Use
  Company Number: TR-JNJFOC-20071005228

PATIENT
  Sex: Male
  Weight: 29 kg

DRUGS (2)
  1. TOPAMAX [Suspect]
     Route: 048
  2. TOPAMAX [Suspect]
     Indication: EPILEPSY
     Route: 048

REACTIONS (7)
  - ATAXIA [None]
  - HYPERSOMNIA [None]
  - LETHARGY [None]
  - MENINGISM [None]
  - NAUSEA [None]
  - OVERDOSE [None]
  - VOMITING [None]
